FAERS Safety Report 24375115 (Version 1)
Quarter: 2024Q3

REPORT INFORMATION
  Report Type: Spontaneous
  Country: CN (occurrence: CN)
  Receive Date: 20240928
  Receipt Date: 20240928
  Transmission Date: 20241017
  Serious: Yes (Disabling)
  Sender: ABBVIE
  Company Number: CN-PFIZER INC-PV202400123668

PATIENT
  Age: 77 Year
  Sex: Female
  Weight: 45 kg

DRUGS (9)
  1. AVIBACTAM SODIUM [Suspect]
     Active Substance: AVIBACTAM SODIUM
     Indication: Pneumonia
     Dosage: TIME INTERVAL: 0.33333333 DAYS
     Route: 041
     Dates: start: 20240805, end: 20240813
  2. AZTREONAM [Suspect]
     Active Substance: AZTREONAM
     Indication: Pneumonia
     Route: 041
     Dates: start: 20240805, end: 20240812
  3. POSACONAZOLE [Suspect]
     Active Substance: POSACONAZOLE
     Indication: Pneumonia
     Route: 041
     Dates: start: 20240805, end: 20240814
  4. AMPHOTERICIN B CHOLESTERYL SULFATE [Suspect]
     Active Substance: AMPHOTERICIN B CHOLESTERYL SULFATE
     Indication: Pneumonia
     Route: 065
     Dates: start: 20240805, end: 20240815
  5. SODIUM CHLORIDE [Concomitant]
     Active Substance: SODIUM CHLORIDE
     Indication: Vehicle solution use
     Route: 041
     Dates: start: 20240805, end: 20240814
  6. SODIUM CHLORIDE [Concomitant]
     Active Substance: SODIUM CHLORIDE
     Indication: Vehicle solution use
     Route: 041
     Dates: start: 20240805, end: 20240812
  7. SODIUM CHLORIDE [Concomitant]
     Active Substance: SODIUM CHLORIDE
     Indication: Vehicle solution use
     Dosage: TIME INTERVAL: 0.33333333 DAYS
     Route: 041
     Dates: start: 20240805, end: 20240813
  8. STERILE WATER [Suspect]
     Active Substance: WATER
     Indication: Vehicle solution use
     Route: 065
     Dates: start: 20240805, end: 20240815
  9. DEXTROSE [Concomitant]
     Active Substance: DEXTROSE\DEXTROSE MONOHYDRATE
     Indication: Vehicle solution use
     Route: 065
     Dates: start: 20240805, end: 20240815

REACTIONS (1)
  - Hepatic function abnormal [Recovering/Resolving]

NARRATIVE: CASE EVENT DATE: 20240807
